FAERS Safety Report 10758570 (Version 2)
Quarter: 2015Q1

REPORT INFORMATION
  Report Type: Spontaneous
  Country: MM (occurrence: MM)
  Receive Date: 20150203
  Receipt Date: 20150323
  Transmission Date: 20150721
  Serious: Yes (Hospitalization)
  Sender: FDA-Public Use
  Company Number: MM-BAYER-2015-014154

PATIENT
  Age: 55 Year
  Sex: Male

DRUGS (1)
  1. ULTRAVIST [Suspect]
     Active Substance: IOPROMIDE
     Indication: DIAGNOSTIC PROCEDURE
     Dosage: 80 ML, ONCE
     Route: 042
     Dates: start: 20150123, end: 20150123

REACTIONS (4)
  - Hypoaesthesia [None]
  - Hyperhidrosis [None]
  - Rash [None]
  - Pulse absent [None]

NARRATIVE: CASE EVENT DATE: 20150123
